FAERS Safety Report 4600489-9 (Version None)
Quarter: 2005Q1

REPORT INFORMATION
  Report Type: 
  Country: None (occurrence: None)
  Receive Date: 20050304
  Receipt Date: 20050222
  Transmission Date: 20050727
  Serious: Yes (Disabling)
  Sender: FDA-Public Use
  Company Number: HQWYE489719FEB03

PATIENT
  Age: 35 Year
  Sex: Female

DRUGS (9)
  1. EFFEXOR XR [Suspect]
     Indication: DEPRESSION
     Dosage: 37.5 MG 1X PER 1 DAY, ORAL
     Route: 048
     Dates: start: 20020801, end: 20020101
  2. EFFEXOR [Suspect]
     Indication: DEPRESSION
     Dosage: 75 MG OR 150 MG DAILY, ORAL
     Route: 048
     Dates: start: 19940101, end: 19950101
  3. EFFEXOR XR [Suspect]
     Dosage: 225 MG 1X PER 1 DAY, ORAL
     Route: 048
     Dates: start: 20020101, end: 20021101
  4. EFFEXOR XR [Suspect]
     Dosage: 150 MG 1X PER 1 DAY, ORAL
     Route: 048
     Dates: start: 20030208, end: 20030101
  5. KLONOPIN [Concomitant]
  6. ZYPREXA [Concomitant]
  7. NASONEX [Concomitant]
  8. TRIMOX [Concomitant]
  9. PROVIGIL [Concomitant]

REACTIONS (9)
  - ANXIETY [None]
  - CONDITION AGGRAVATED [None]
  - DEPRESSION [None]
  - FEELING OF DESPAIR [None]
  - INTENTIONAL SELF-INJURY [None]
  - OVERDOSE [None]
  - SKIN LACERATION [None]
  - STRESS [None]
  - SUICIDE ATTEMPT [None]
